FAERS Safety Report 9047363 (Version 2)
Quarter: 2013Q4

REPORT INFORMATION
  Report Type: Other
  Country: GB (occurrence: GB)
  Receive Date: 20130201
  Receipt Date: 20131004
  Transmission Date: 20140711
  Serious: Yes (Life-Threatening, Hospitalization)
  Sender: FDA-Public Use
  Company Number: GB-PERRIGO-13GB000603

PATIENT
  Age: 11 Year
  Sex: Male
  Weight: 43.7 kg

DRUGS (12)
  1. IBUPROFEN 16028/0013 200 MG [Suspect]
     Indication: BODY TEMPERATURE INCREASED
     Dosage: 200 MG, UNK
     Route: 048
     Dates: start: 20120927, end: 20120927
  2. ACYCLOVIR [Suspect]
     Indication: PRODUCT USED FOR UNKNOWN INDICATION
     Dosage: UNK
     Route: 065
  3. DICLOFENAC [Suspect]
     Indication: PRODUCT USED FOR UNKNOWN INDICATION
     Dosage: UNK
     Route: 042
  4. NUROFEN [Suspect]
     Indication: OROPHARYNGEAL PAIN
     Dosage: 10 ML, QD
     Route: 048
     Dates: start: 20120920, end: 20120920
  5. NUROFEN [Suspect]
     Indication: VARICELLA
     Dosage: 10 ML, BID
     Route: 048
     Dates: start: 20120927, end: 20120927
  6. AUGMENTIN [Concomitant]
     Indication: PRODUCT USED FOR UNKNOWN INDICATION
     Dosage: UNK
     Route: 065
  7. CALPOL [Concomitant]
     Indication: PRODUCT USED FOR UNKNOWN INDICATION
     Dosage: UNK
     Route: 065
  8. CELLUVISC [Concomitant]
     Indication: PRODUCT USED FOR UNKNOWN INDICATION
     Dosage: UNK
     Route: 065
  9. CETRIZIN [Concomitant]
     Indication: PRODUCT USED FOR UNKNOWN INDICATION
     Dosage: UNK
     Route: 065
  10. GABAPENTIN [Concomitant]
     Indication: PRODUCT USED FOR UNKNOWN INDICATION
     Dosage: UNK
     Route: 065
  11. LACRI-LUBE [Concomitant]
     Indication: PRODUCT USED FOR UNKNOWN INDICATION
     Dosage: UNK
     Route: 065
  12. PREDNISOLONE [Concomitant]
     Indication: PRODUCT USED FOR UNKNOWN INDICATION
     Dosage: UNK
     Route: 065

REACTIONS (8)
  - Toxic epidermal necrolysis [Recovered/Resolved with Sequelae]
  - Eye disorder [Unknown]
  - Medication error [Unknown]
  - Pain [Unknown]
  - Oropharyngeal pain [Unknown]
  - Blister [Unknown]
  - Rash [Unknown]
  - Penile blister [Unknown]
